FAERS Safety Report 5646411-8 (Version None)
Quarter: 2008Q1

REPORT INFORMATION
  Report Type: 
  Country: None (occurrence: None)
  Receive Date: 20080227
  Receipt Date: 20080219
  Transmission Date: 20080703
  Serious: Yes (Life-Threatening)
  Sender: FDA-Public Use
  Company Number: GXKR2008GB01770

PATIENT
  Age: 3 Year
  Sex: Female

DRUGS (1)
  1. METHADONE HCL [Suspect]

REACTIONS (13)
  - ACCIDENTAL POISONING [None]
  - BRAIN OEDEMA [None]
  - CEREBRAL ATROPHY [None]
  - CEREBRAL CALCIFICATION [None]
  - CEREBRAL INFARCTION [None]
  - DYSPNOEA [None]
  - ENCEPHALITIS [None]
  - HYDROCEPHALUS [None]
  - HYPOTHERMIA [None]
  - LOSS OF CONSCIOUSNESS [None]
  - METABOLIC ACIDOSIS [None]
  - MUSCLE SPASTICITY [None]
  - PUPIL FIXED [None]
